FAERS Safety Report 13458131 (Version 2)
Quarter: 2017Q2

REPORT INFORMATION
  Report Type: Spontaneous
  Country: US (occurrence: US)
  Receive Date: 20170419
  Receipt Date: 20170516
  Transmission Date: 20170830
  Serious: No
  Sender: FDA-Public Use
  Company Number: US-TAKEDA-2017MPI003446

PATIENT
  Sex: Male
  Weight: 97.96 kg

DRUGS (2)
  1. REVLIMID [Suspect]
     Active Substance: LENALIDOMIDE
     Indication: PLASMA CELL MYELOMA
     Dosage: 5 MG, UNK
     Route: 065
     Dates: start: 20170417
  2. NINLARO [Suspect]
     Active Substance: IXAZOMIB
     Indication: PLASMA CELL MYELOMA
     Dosage: 4 MG, UNK
     Route: 048

REACTIONS (7)
  - Ocular hyperaemia [Unknown]
  - Dysphonia [Unknown]
  - Lip swelling [Unknown]
  - Lacrimation increased [Unknown]
  - Eye swelling [Unknown]
  - Urticaria [Unknown]
  - Swelling face [Unknown]
